FAERS Safety Report 23818013 (Version 2)
Quarter: 2024Q2

REPORT INFORMATION
  Report Type: Spontaneous
  Country: US (occurrence: US)
  Receive Date: 20240506
  Receipt Date: 20240604
  Transmission Date: 20240716
  Serious: No
  Sender: FDA-Public Use
  Company Number: US-BRISTOL-MYERS SQUIBB COMPANY-2024-068307

PATIENT
  Age: 12 Year
  Sex: Female

DRUGS (3)
  1. THALOMID [Suspect]
     Active Substance: THALIDOMIDE
     Indication: Brain neoplasm malignant
     Dosage: FREQUENCY: 28
     Dates: start: 20210901
  2. THALOMID [Suspect]
     Active Substance: THALIDOMIDE
     Dosage: FREQUENCY: 28
  3. THALOMID [Suspect]
     Active Substance: THALIDOMIDE
     Dosage: FREQUENCY: 56

REACTIONS (2)
  - Off label use [Unknown]
  - Poor venous access [Unknown]
